FAERS Safety Report 8084307-5 (Version None)
Quarter: 2012Q1

REPORT INFORMATION
  Report Type: 
  Country: None (occurrence: None)
  Receive Date: 20120128
  Receipt Date: 20110308
  Transmission Date: 20120608
  Serious: No
  Sender: FDA-Public Use
  Company Number: US-ABBOTT-11P-163-0710074-00

PATIENT
  Age: 55 Year
  Sex: Male

DRUGS (3)
  1. AMBIEN [Concomitant]
     Indication: INSOMNIA
  2. HUMIRA [Suspect]
     Indication: POLYARTHRITIS
     Dates: start: 20110203
  3. ARITHROTEK [Concomitant]
     Indication: ARTHRITIS

REACTIONS (2)
  - STRESS [None]
  - PAIN [None]
